FAERS Safety Report 6167059-5 (Version None)
Quarter: 2009Q2

REPORT INFORMATION
  Report Type: 
  Country: None (occurrence: None)
  Receive Date: 20090424
  Receipt Date: 20090414
  Transmission Date: 20091009
  Serious: Yes (Other)
  Sender: FDA-Public Use
  Company Number: GB-PFIZER INC-2009201721

PATIENT

DRUGS (2)
  1. NICOTINE [Suspect]
  2. NICOTINE [Suspect]
     Dosage: 25 MG, (OVER 16 H- 2)
     Route: 062
     Dates: start: 20090209

REACTIONS (3)
  - CONDITION AGGRAVATED [None]
  - EYE INFECTION [None]
  - EYE SWELLING [None]
